FAERS Safety Report 26135799 (Version 1)
Quarter: 2025Q4

REPORT INFORMATION
  Report Type: Spontaneous
  Country: PH (occurrence: PH)
  Receive Date: 20251209
  Receipt Date: 20251209
  Transmission Date: 20260118
  Serious: Yes (Other)
  Sender: ALEXION PHARMACEUTICALS
  Company Number: PH-AstraZeneca-CH-01009339A

PATIENT
  Sex: Female

DRUGS (1)
  1. SAPHNELO [Suspect]
     Active Substance: ANIFROLUMAB-FNIA
     Dosage: UNK
     Route: 065

REACTIONS (1)
  - Glomerulonephritis rapidly progressive [Unknown]
